FAERS Safety Report 7459210-1 (Version None)
Quarter: 2011Q2

REPORT INFORMATION
  Report Type: 
  Country: None (occurrence: None)
  Receive Date: 20110505
  Receipt Date: 20110427
  Transmission Date: 20111010
  Serious: No
  Sender: FDA-Public Use
  Company Number: US-BIOGENIDEC-2011BI015918

PATIENT
  Age: 37 Year
  Sex: Female

DRUGS (2)
  1. AVONEX [Suspect]
     Indication: MULTIPLE SCLEROSIS
     Route: 030
     Dates: start: 19980101, end: 20090101
  2. AVONEX [Suspect]
     Route: 030
     Dates: start: 20090101

REACTIONS (3)
  - GAIT DISTURBANCE [None]
  - BACK PAIN [None]
  - MUSCULOSKELETAL STIFFNESS [None]
